FAERS Safety Report 25564653 (Version 2)
Quarter: 2025Q3

REPORT INFORMATION
  Report Type: Spontaneous
  Country: EU (occurrence: EU)
  Receive Date: 20250716
  Receipt Date: 20250725
  Transmission Date: 20251021
  Serious: Yes (Other)
  Sender: BAYER HEALTHCARE PHARMACEUTICALS INC.
  Company Number: EU-BAYER-2025A091463

PATIENT
  Age: 20 Year
  Sex: Female

DRUGS (3)
  1. ADEMPAS [Suspect]
     Active Substance: RIOCIGUAT
     Indication: Pulmonary arterial hypertension
     Dosage: 2.5 MG, TID
     Dates: start: 2021
  2. TREPROSTINIL [Concomitant]
     Active Substance: TREPROSTINIL
     Route: 042
     Dates: start: 2021
  3. IMATINIB [Concomitant]
     Active Substance: IMATINIB
     Dosage: 100 MG, BID
     Dates: start: 20220606

REACTIONS (3)
  - Oxygen saturation decreased [None]
  - Blood pressure diastolic decreased [None]
  - Right ventricular dysfunction [None]

NARRATIVE: CASE EVENT DATE: 20220804
